FAERS Safety Report 18555578 (Version 1)
Quarter: 2020Q4

REPORT INFORMATION
  Report Type: Spontaneous
  Country: US (occurrence: US)
  Receive Date: 20201127
  Receipt Date: 20201127
  Transmission Date: 20210114
  Serious: Yes (Hospitalization)
  Sender: FDA-Public Use
  Company Number: US-FRESENIUS MEDICAL CARE RENAL THERAPIES GROUP-FMC-2011-001439

PATIENT
  Age: 73 Year
  Sex: Male
  Weight: 82 kg

DRUGS (2)
  1. DELFLEX WITH DEXTROSE 1.5% LOW MAGNESIUM LOW CALCIUM [Suspect]
     Active Substance: CALCIUM CHLORIDE\DEXTROSE\MAGNESIUM CHLORIDE\SODIUM CHLORIDE\SODIUM LACTATE
     Indication: END STAGE RENAL DISEASE
     Dosage: AT 2000 ML FOR 4 CYCLES, NO LAST FILL, NO DAYTIME EXCHANGE, SINCE 03MAR2020
     Route: 033
     Dates: start: 20200303
  2. DELFLEX WITH DEXTROSE 2.5% LOW MAGNESIUM LOW CALCIUM [Suspect]
     Active Substance: CALCIUM CHLORIDE\DEXTROSE\MAGNESIUM CHLORIDE\SODIUM CHLORIDE\SODIUM LACTATE
     Indication: END STAGE RENAL DISEASE
     Dosage: AT 2000 ML FOR 4 CYCLES, NO LAST FILL, NO DAYTIME EXCHANGE, SINCE 03MAR2020
     Route: 033
     Dates: start: 20200303

REACTIONS (1)
  - Peritonitis bacterial [Unknown]
